FAERS Safety Report 5653039-2 (Version None)
Quarter: 2008Q1

REPORT INFORMATION
  Report Type: 
  Country: None (occurrence: None)
  Receive Date: 20080306
  Receipt Date: 20080227
  Transmission Date: 20080703
  Serious: Yes (Other)
  Sender: FDA-Public Use
  Company Number: US-ASTRAZENECA-2008UW04149

PATIENT
  Age: 81 Year
  Sex: Male
  Weight: 83.5 kg

DRUGS (4)
  1. CRESTOR [Suspect]
     Indication: BLOOD CHOLESTEROL INCREASED
     Route: 048
     Dates: start: 20080101, end: 20080216
  2. PROPRANOLOL [Concomitant]
  3. LANOXIN [Concomitant]
  4. ASPIRIN [Concomitant]

REACTIONS (5)
  - DYSPNOEA [None]
  - EATING DISORDER [None]
  - FATIGUE [None]
  - MYALGIA [None]
  - WEIGHT DECREASED [None]
